FAERS Safety Report 10186554 (Version 1)
Quarter: 2014Q2

REPORT INFORMATION
  Report Type: Spontaneous
  Country: US (occurrence: US)
  Receive Date: 20140521
  Receipt Date: 20140521
  Transmission Date: 20141212
  Serious: No
  Sender: FDA-Public Use
  Company Number: US-TEVA-479183USA

PATIENT
  Age: 84 Year
  Sex: Male
  Weight: 68.1 kg

DRUGS (10)
  1. AZILECT [Suspect]
     Indication: PARKINSON^S DISEASE
     Dates: start: 20140213
  2. CLONAZEPAM [Concomitant]
     Indication: INSOMNIA
  3. SINEMET [Concomitant]
     Indication: PARKINSON^S DISEASE
     Dosage: 2, FOUR TIMES DAILY
  4. ARICEPT [Concomitant]
     Indication: MEMORY IMPAIRMENT
  5. CALCIUM [Concomitant]
     Indication: NUTRITIONAL SUPPLEMENTATION
  6. BONIVA [Concomitant]
     Indication: OSTEOPENIA
  7. WARFARIN [Concomitant]
     Indication: PROPHYLAXIS
  8. MULTIVITAMIN [Concomitant]
     Indication: NUTRITIONAL SUPPLEMENTATION
  9. MELATONIN [Concomitant]
     Indication: INSOMNIA
  10. FISH OIL [Concomitant]
     Indication: NUTRITIONAL SUPPLEMENTATION

REACTIONS (4)
  - Activities of daily living impaired [Not Recovered/Not Resolved]
  - Insomnia [Not Recovered/Not Resolved]
  - Fatigue [Not Recovered/Not Resolved]
  - Apathy [Not Recovered/Not Resolved]
